FAERS Safety Report 4391507-4 (Version None)
Quarter: 2004Q3

REPORT INFORMATION
  Report Type: 
  Country: None (occurrence: None)
  Receive Date: 20040701
  Receipt Date: 20040618
  Transmission Date: 20050211
  Serious: Yes (Hospitalization)
  Sender: FDA-Public Use
  Company Number: US-JNJFOC-20040605322

PATIENT
  Age: 69 Year
  Sex: Female

DRUGS (11)
  1. DURAGESIC [Suspect]
     Indication: PAIN
     Dosage: 75 UG/HR, 1 IN 72 HOUR, TRANSDERMAL
     Route: 062
     Dates: start: 20020101
  2. GLUCOPHAGE [Concomitant]
  3. AMBIEN [Concomitant]
  4. MAXIDE (DYAZIDE) [Concomitant]
  5. INSULIN (INSULIN) SUSPENSION [Concomitant]
  6. LOMOTIL [Concomitant]
  7. ACETYLSALICYLIC ACID SRT [Concomitant]
  8. B12 (CYANOCOBALAMIN) [Concomitant]
  9. ZOCOR [Concomitant]
  10. SYNTHROID [Concomitant]
  11. IBUPROFEN [Concomitant]

REACTIONS (4)
  - MEDICATION ERROR [None]
  - PHARMACEUTICAL PRODUCT COMPLAINT [None]
  - PYREXIA [None]
  - THERAPEUTIC RESPONSE DECREASED [None]
